FAERS Safety Report 6370814-X (Version None)
Quarter: 2009Q3

REPORT INFORMATION
  Report Type: 
  Country: None (occurrence: None)
  Receive Date: 20090923
  Receipt Date: 20070625
  Transmission Date: 20100115
  Serious: Yes (Other)
  Sender: FDA-Public Use
  Company Number: US-ASTRAZENECA-2006UW23874

PATIENT
  Age: 56 Year
  Sex: Male
  Weight: 95.7 kg

DRUGS (17)
  1. SEROQUEL [Suspect]
     Indication: TREMOR
     Dosage: 100-700 MG
     Route: 048
     Dates: start: 19990507
  2. SEROQUEL [Suspect]
     Indication: SCHIZOAFFECTIVE DISORDER
     Dosage: 100-700 MG
     Route: 048
     Dates: start: 19990507
  3. SEROQUEL [Suspect]
     Indication: BIPOLAR DISORDER
     Dosage: 100-700 MG
     Route: 048
     Dates: start: 19990507
  4. SEROQUEL [Suspect]
     Dosage: 3.5 TABLETS QD
     Route: 048
     Dates: start: 19990101
  5. SEROQUEL [Suspect]
     Dosage: 3.5 TABLETS QD
     Route: 048
     Dates: start: 19990101
  6. SEROQUEL [Suspect]
     Dosage: 3.5 TABLETS QD
     Route: 048
     Dates: start: 19990101
  7. ZYPREXA [Suspect]
     Dosage: 15-20 MG
     Route: 048
     Dates: start: 19990101
  8. NAVANE [Concomitant]
     Dates: start: 19890101
  9. RISPERDAL [Concomitant]
     Dates: start: 19920101
  10. STELAZINE [Concomitant]
     Dates: start: 19860101
  11. THORAZINE [Concomitant]
     Dates: start: 19810101
  12. LOPRESSOR [Concomitant]
     Route: 048
  13. LIPITOR [Concomitant]
     Route: 048
  14. NEURONTIN [Concomitant]
     Route: 048
  15. NIACIN [Concomitant]
     Dosage: 10-1000 MG
     Route: 048
  16. KLONOPIN [Concomitant]
     Dosage: 0.5-2 MG
     Route: 048
  17. COGENTIN [Concomitant]
     Dosage: 2-3 MG
     Route: 048

REACTIONS (4)
  - DIABETES MELLITUS [None]
  - DIABETIC KETOACIDOSIS [None]
  - KETOACIDOSIS [None]
  - TYPE 2 DIABETES MELLITUS [None]
